FAERS Safety Report 18600848 (Version 1)
Quarter: 2020Q4

REPORT INFORMATION
  Report Type: Spontaneous
  Country: BE (occurrence: BE)
  Receive Date: 20201210
  Receipt Date: 20201210
  Transmission Date: 20210114
  Serious: Yes (Other)
  Sender: FDA-Public Use
  Company Number: BE-PFIZER INC-2020145298

PATIENT
  Age: 64 Year
  Sex: Female

DRUGS (3)
  1. PROSTIN [Suspect]
     Active Substance: ALPROSTADIL
     Indication: SALVAGE THERAPY
     Dosage: 0.5 MG IN A VIAL AT THE RATE OF 1.5 VIALS OR 2 VIALS PER 24 HOURS, FOR 7 DAYS
  2. PROSTIN [Suspect]
     Active Substance: ALPROSTADIL
     Indication: PROPHYLAXIS
  3. PROSTIN [Suspect]
     Active Substance: ALPROSTADIL
     Indication: PROMOTION OF WOUND HEALING

REACTIONS (4)
  - Infected skin ulcer [Unknown]
  - Drug effective for unapproved indication [Unknown]
  - Sensitivity to weather change [Unknown]
  - Off label use [Unknown]
